FAERS Safety Report 8772278 (Version 2)
Quarter: 2012Q4

REPORT INFORMATION
  Report Type: 
  Country: ES (occurrence: ES)
  Receive Date: 20120905
  Receipt Date: 20120919
  Transmission Date: 20130627
  Serious: Yes (Other)
  Sender: FDA-Public Use
  Company Number: ES-JNJFOC-20120814737

PATIENT

DRUGS (1)
  1. IBUPROFEN [Suspect]
     Indication: PRODUCT USED FOR UNKNOWN INDICATION
     Route: 048

REACTIONS (9)
  - Angioedema [Unknown]
  - Respiratory disorder [Unknown]
  - Urticaria [Unknown]
  - Atopy [Unknown]
  - Drug hypersensitivity [None]
  - Dyspnoea [None]
  - Wheezing [None]
  - Cough [None]
  - Periorbital oedema [None]
